FAERS Safety Report 24147980 (Version 1)
Quarter: 2024Q3

REPORT INFORMATION
  Report Type: Spontaneous
  Country: TW (occurrence: TW)
  Receive Date: 20240729
  Receipt Date: 20240729
  Transmission Date: 20241016
  Serious: Yes (Other)
  Sender: NOVARTIS
  Company Number: TW-002147023-NVSC2024TW153493

PATIENT
  Age: 43 Year
  Sex: Female

DRUGS (2)
  1. MAYZENT [Suspect]
     Active Substance: SIPONIMOD
     Indication: Relapsing-remitting multiple sclerosis
     Dosage: UNK
     Route: 048
     Dates: start: 202102
  2. FINGOLIMOD [Suspect]
     Active Substance: FINGOLIMOD
     Indication: Relapsing-remitting multiple sclerosis
     Dosage: UNK
     Route: 065
     Dates: start: 201402

REACTIONS (5)
  - Lymphopenia [Unknown]
  - Myelopathy [Unknown]
  - Muscular weakness [Unknown]
  - Hypoaesthesia [Unknown]
  - Bradycardia [Unknown]

NARRATIVE: CASE EVENT DATE: 20211006
